FAERS Safety Report 14275445 (Version 1)
Quarter: 2017Q4

REPORT INFORMATION
  Report Type: Spontaneous
  Country: AT (occurrence: AT)
  Receive Date: 20171211
  Receipt Date: 20171211
  Transmission Date: 20180321
  Serious: Yes (Hospitalization)
  Sender: FDA-Public Use
  Company Number: AT-OTSUKA-J20127883

PATIENT
  Age: 27 Year
  Sex: Male

DRUGS (20)
  1. ABILIFY [Suspect]
     Active Substance: ARIPIPRAZOLE
     Indication: SOCIAL ANXIETY DISORDER
  2. RIVOTRIL [Suspect]
     Active Substance: CLONAZEPAM
     Indication: PRODUCT USED FOR UNKNOWN INDICATION
     Dosage: UNK
     Route: 065
  3. CLONAZEPAM. [Suspect]
     Active Substance: CLONAZEPAM
     Indication: PRODUCT USED FOR UNKNOWN INDICATION
     Route: 065
  4. DIPHENHYDRAMINE HCL [Concomitant]
     Active Substance: DIPHENHYDRAMINE HYDROCHLORIDE
     Indication: PRODUCT USED FOR UNKNOWN INDICATION
     Dosage: UNK
     Route: 065
     Dates: start: 20120806
  5. CIPRALEX [Suspect]
     Active Substance: ESCITALOPRAM OXALATE
     Indication: SOCIAL ANXIETY DISORDER
     Dosage: 03AUG12 UNTIL 19AUG12,10MG 20AUG12 UNTIL 31AUG12. 20MG 10MG:01SEP-04SEP12
     Route: 065
     Dates: start: 20120803
  6. CLONAZEPAM. [Concomitant]
     Active Substance: CLONAZEPAM
     Indication: PRODUCT USED FOR UNKNOWN INDICATION
     Dosage: UNK
     Route: 065
     Dates: start: 20120812, end: 20120910
  7. ABILIFY [Suspect]
     Active Substance: ARIPIPRAZOLE
     Indication: PANIC DISORDER
     Dosage: 10 MG:23AUG12
     Route: 065
     Dates: start: 20120820, end: 20120823
  8. DIBONDRIN [Suspect]
     Active Substance: DIPHENHYDRAMINE HYDROCHLORIDE
     Indication: PRODUCT USED FOR UNKNOWN INDICATION
     Dosage: UNK
     Route: 065
  9. LEXAPRO [Suspect]
     Active Substance: ESCITALOPRAM OXALATE
     Indication: SOCIAL ANXIETY DISORDER
     Dosage: 03AUG12 UNTIL 19AUG12,10MG  20AUG12 UNTIL 31AUG12. 20MG  10MG:01SEP-04SEP12
     Route: 065
     Dates: start: 20120803
  10. LEXAPRO [Suspect]
     Active Substance: ESCITALOPRAM OXALATE
     Indication: PANIC DISORDER
  11. OLANZAPINE. [Suspect]
     Active Substance: OLANZAPINE
     Indication: PANIC DISORDER
  12. CIPRALEX [Suspect]
     Active Substance: ESCITALOPRAM OXALATE
     Indication: PANIC DISORDER
  13. ZYPREXA [Suspect]
     Active Substance: OLANZAPINE
     Indication: PANIC DISORDER
  14. ZYPREXA [Suspect]
     Active Substance: OLANZAPINE
     Indication: GENERALISED ANXIETY DISORDER
     Dosage: 10AUG12 UNTIL 20AUG12, 20MG 21AUG12 UNTIL 22AUG12, 10MG  5MG:23AUG12
     Route: 065
     Dates: start: 20120820, end: 20120823
  15. ABILIFY [Suspect]
     Active Substance: ARIPIPRAZOLE
     Indication: GENERALISED ANXIETY DISORDER
  16. CIPRALEX [Suspect]
     Active Substance: ESCITALOPRAM OXALATE
     Indication: GENERALISED ANXIETY DISORDER
  17. ZYPREXA [Suspect]
     Active Substance: OLANZAPINE
     Indication: SOCIAL ANXIETY DISORDER
  18. LEXAPRO [Suspect]
     Active Substance: ESCITALOPRAM OXALATE
     Indication: GENERALISED ANXIETY DISORDER
  19. OLANZAPINE. [Suspect]
     Active Substance: OLANZAPINE
     Indication: GENERALISED ANXIETY DISORDER
     Dosage: 10AUG12 UNTIL 20AUG12, 20MG  21AUG12 UNTIL 22AUG12, 10MG  5MG:23AUG12
     Route: 065
     Dates: start: 20120820, end: 20120823
  20. OLANZAPINE. [Suspect]
     Active Substance: OLANZAPINE
     Indication: SOCIAL ANXIETY DISORDER

REACTIONS (2)
  - Akathisia [Recovered/Resolved]
  - Off label use [Unknown]

NARRATIVE: CASE EVENT DATE: 20120821
